FAERS Safety Report 23445456 (Version 1)
Quarter: 2024Q1

REPORT INFORMATION
  Report Type: Report from Study
  Country: US (occurrence: US)
  Receive Date: 20240126
  Receipt Date: 20240126
  Transmission Date: 20240410
  Serious: Yes (Other)
  Sender: FDA-Public Use
  Company Number: US-ABBVIE-5599394

PATIENT
  Sex: Male

DRUGS (1)
  1. HUMIRA [Suspect]
     Active Substance: ADALIMUMAB
     Indication: Hidradenitis
     Dosage: FORM STRENGTH: 40 MILLIGRAM
     Route: 058
     Dates: start: 20230404

REACTIONS (7)
  - Disability [Not Recovered/Not Resolved]
  - Back disorder [Not Recovered/Not Resolved]
  - Hypertension [Unknown]
  - Ventriculo-peritoneal shunt [Not Recovered/Not Resolved]
  - Cardiac failure [Unknown]
  - Blindness unilateral [Not Recovered/Not Resolved]
  - Arthropathy [Not Recovered/Not Resolved]
